FAERS Safety Report 17777149 (Version 4)
Quarter: 2020Q2

REPORT INFORMATION
  Report Type: Report from Study
  Country: IL (occurrence: IL)
  Receive Date: 20200513
  Receipt Date: 20200527
  Transmission Date: 20200714
  Serious: Yes (Hospitalization, Disabling, Other)
  Sender: FDA-Public Use
  Company Number: IL-KYOWAKIRIN-2020BKK007567

PATIENT

DRUGS (1)
  1. BUROSUMAB [Suspect]
     Active Substance: BUROSUMAB
     Indication: HEREDITARY HYPOPHOSPHATAEMIC RICKETS
     Dosage: 70 MG, 1X/MONTH
     Route: 065
     Dates: start: 201911

REACTIONS (4)
  - Vertebral foraminal stenosis [Unknown]
  - Spinal ligament ossification [Unknown]
  - Back pain [Recovering/Resolving]
  - Spinal cord compression [Unknown]

NARRATIVE: CASE EVENT DATE: 20200503
